FAERS Safety Report 9346783 (Version 2)
Quarter: 2013Q3

REPORT INFORMATION
  Report Type: Spontaneous
  Country: US (occurrence: US)
  Receive Date: 20130613
  Receipt Date: 20130731
  Transmission Date: 20140515
  Serious: Yes (Other)
  Sender: FDA-Public Use
  Company Number: US-PFIZER INC-2013176473

PATIENT
  Sex: Male
  Weight: 111 kg

DRUGS (7)
  1. LIPITOR [Suspect]
     Indication: BLOOD CHOLESTEROL ABNORMAL
     Dosage: 40 MG DAILY
  2. CARDURA [Suspect]
     Indication: CARDIAC DISORDER
     Dosage: 2 MG, 2X/DAY
  3. PROCARDIA [Suspect]
     Indication: CARDIAC DISORDER
     Dosage: 60 MG, 2X/DAY
  4. PROCARDIA [Suspect]
     Indication: BLOOD PRESSURE ABNORMAL
  5. LYRICA [Suspect]
     Indication: NEURALGIA
     Dosage: 100 MG DAILY
  6. ALLOPURINOL [Concomitant]
     Dosage: 100 MG DAILY
  7. COUMADIN [Concomitant]
     Indication: ANTICOAGULANT THERAPY
     Dosage: 7.5 MG DAILY

REACTIONS (1)
  - Renal impairment [Not Recovered/Not Resolved]
